FAERS Safety Report 4721428-6 (Version None)
Quarter: 2005Q3

REPORT INFORMATION
  Report Type: 
  Country: None (occurrence: None)
  Receive Date: 20050721
  Receipt Date: 20040830
  Transmission Date: 20060218
  Serious: No
  Sender: FDA-Public Use
  Company Number: US-BRISTOL-MYERS SQUIBB COMPANY-12687778

PATIENT
  Age: 83 Year
  Sex: Female
  Weight: 42 kg

DRUGS (10)
  1. COUMADIN [Suspect]
     Indication: CEREBROVASCULAR ACCIDENT
     Route: 048
     Dates: start: 20040404
  2. COUMADIN [Suspect]
     Indication: MYOCARDIAL INFARCTION
     Route: 048
     Dates: start: 20040404
  3. SYNTHROID [Concomitant]
  4. DIOXIN [Concomitant]
  5. AVAPRO [Concomitant]
  6. METOPROLOL [Concomitant]
  7. ACTOS [Concomitant]
  8. FUROSEMIDE [Concomitant]
  9. SPIRONOLACTONE [Concomitant]
  10. ACTONEL [Concomitant]

REACTIONS (2)
  - PROTHROMBIN TIME ABNORMAL [None]
  - SKIN DISORDER [None]
